FAERS Safety Report 21857459 (Version 1)
Quarter: 2023Q1

REPORT INFORMATION
  Report Type: Spontaneous
  Country: JP (occurrence: JP)
  Receive Date: 20230113
  Receipt Date: 20230113
  Transmission Date: 20230417
  Serious: Yes (Hospitalization)
  Sender: FDA-Public Use
  Company Number: JP-CHUGAI-2023000431

PATIENT
  Age: 89 Year
  Sex: Female

DRUGS (3)
  1. ACTEMRA [Suspect]
     Active Substance: TOCILIZUMAB
     Indication: Rheumatoid arthritis
     Dosage: 400 MILLIGRAM/2MONTHS
     Route: 041
     Dates: start: 20150407, end: 20221227
  2. MINODRONIC ACID [Concomitant]
     Active Substance: MINODRONIC ACID
     Dosage: 50 MILLIGRAM
     Route: 065
     Dates: start: 201504
  3. VONOPRAZAN FUMARATE [Concomitant]
     Active Substance: VONOPRAZAN FUMARATE
     Dosage: UNK
     Route: 065
     Dates: start: 201504

REACTIONS (2)
  - Lymphoproliferative disorder [Not Recovered/Not Resolved]
  - Off label use [Unknown]

NARRATIVE: CASE EVENT DATE: 20221201
